FAERS Safety Report 21057196 (Version 1)
Quarter: 2022Q3

REPORT INFORMATION
  Report Type: Spontaneous
  Country: US (occurrence: None)
  Receive Date: 20220707
  Receipt Date: 20220707
  Transmission Date: 20221027
  Serious: No
  Sender: FDA-Public Use
  Company Number: None

PATIENT
  Age: 44 Year
  Sex: Female
  Weight: 121.5 kg

DRUGS (12)
  1. CIPROFLOXACIN [Suspect]
     Active Substance: CIPROFLOXACIN
     Indication: Urinary tract infection
     Dosage: OTHER QUANTITY : 6 TABLET(S);?FREQUENCY : EVERY 12 HOURS;?
     Route: 048
     Dates: start: 20220624, end: 20220629
  2. SERTRALINE HYDROCHLORIDE [Concomitant]
     Active Substance: SERTRALINE HYDROCHLORIDE
  3. clonazepam 0.25mg [Concomitant]
  4. LEVOTHYROXINE [Concomitant]
     Active Substance: LEVOTHYROXINE
  5. Vitamin D 1,000IU [Concomitant]
  6. VICTOZA [Concomitant]
     Active Substance: LIRAGLUTIDE
  7. budesonide/formoterol inhaler 2 puffs q12h [Concomitant]
  8. albuterol inhaler prn [Concomitant]
  9. Melatonin 10mg in evening [Concomitant]
  10. n-acetylcysteine 600mg q12h [Concomitant]
  11. Vitamin C 1,000 mg [Concomitant]
  12. B12 sublingual 4,000mcg [Concomitant]

REACTIONS (5)
  - Irritability [None]
  - Anxiety [None]
  - Anger [None]
  - Hypervigilance [None]
  - Insomnia [None]

NARRATIVE: CASE EVENT DATE: 20220629
